FAERS Safety Report 21789188 (Version 2)
Quarter: 2023Q1

REPORT INFORMATION
  Report Type: Spontaneous
  Country: IE (occurrence: IE)
  Receive Date: 20221228
  Receipt Date: 20230307
  Transmission Date: 20230418
  Serious: Yes (Life-Threatening, Hospitalization, Other)
  Sender: FDA-Public Use
  Company Number: IE-PFIZER INC-PV202200131725

PATIENT
  Sex: Female

DRUGS (6)
  1. LORAZEPAM [Suspect]
     Active Substance: LORAZEPAM
     Indication: Dyskinesia
     Dosage: 0.1 MG/KG
  2. FENTANYL [Suspect]
     Active Substance: FENTANYL
     Indication: Dyskinesia
     Dosage: 2 UG/KG
  3. LEVETIRACETAM [Suspect]
     Active Substance: LEVETIRACETAM
     Indication: Dyskinesia
     Dosage: 60 MG/KG
  4. ATROPINE [Suspect]
     Active Substance: ATROPINE
     Indication: Dyskinesia
     Dosage: 0.01 MG/KG
  5. SUCCINYLCHOLINE [Suspect]
     Active Substance: SUCCINYLCHOLINE
     Indication: Dyskinesia
     Dosage: 2 MG/KG
  6. PHENOBARBITAL [Suspect]
     Active Substance: PHENOBARBITAL
     Indication: Dyskinesia
     Dosage: 40 MG/KG

REACTIONS (4)
  - Neonatal respiratory failure [Recovering/Resolving]
  - Infantile apnoea [Recovering/Resolving]
  - Off label use [Unknown]
  - Drug ineffective for unapproved indication [Unknown]
